FAERS Safety Report 4663853-8 (Version None)
Quarter: 2005Q2

REPORT INFORMATION
  Report Type: 
  Country: None (occurrence: None)
  Receive Date: 20050516
  Receipt Date: 20050428
  Transmission Date: 20051028
  Serious: Yes (Life-Threatening, Hospitalization)
  Sender: FDA-Public Use
  Company Number: DSA_26388_2005

PATIENT
  Age: 62 Year
  Sex: Female

DRUGS (1)
  1. HERBESSER ^DELTA^ [Suspect]
     Indication: CEREBRAL HAEMORRHAGE
     Dosage: DF IV
     Route: 042
     Dates: start: 20050223, end: 20050224

REACTIONS (2)
  - BRADYCARDIA [None]
  - DEPRESSED LEVEL OF CONSCIOUSNESS [None]
